FAERS Safety Report 8177053-0 (Version None)
Quarter: 2012Q1

REPORT INFORMATION
  Report Type: 
  Country: None (occurrence: None)
  Receive Date: 20120301
  Receipt Date: 20120223
  Transmission Date: 20120608
  Serious: Yes (Hospitalization)
  Sender: FDA-Public Use
  Company Number: US-GLAXOSMITHKLINE-A0899023A

PATIENT
  Age: 84 Year
  Sex: Male

DRUGS (1)
  1. AVANDIA [Suspect]
     Indication: DIABETES MELLITUS
     Dosage: 4MG TWICE PER DAY
     Route: 048
     Dates: end: 20100201

REACTIONS (3)
  - CEREBROVASCULAR ACCIDENT [None]
  - TRAUMATIC RENAL INJURY [None]
  - RENAL HAEMATOMA [None]
